FAERS Safety Report 21958246 (Version 2)
Quarter: 2023Q1

REPORT INFORMATION
  Report Type: Spontaneous
  Country: JP (occurrence: JP)
  Receive Date: 20230206
  Receipt Date: 20230208
  Transmission Date: 20230418
  Serious: Yes (Life-Threatening, Hospitalization, Other)
  Sender: FDA-Public Use
  Company Number: JP-MLMSERVICE-20230131-4062451-1

PATIENT
  Age: 46 Year
  Sex: Male
  Weight: 111 kg

DRUGS (5)
  1. METHYLPREDNISOLONE SODIUM SUCCINATE [Suspect]
     Active Substance: METHYLPREDNISOLONE SODIUM SUCCINATE
     Indication: Acute respiratory distress syndrome
     Dosage: (1 G METHYLPREDNISOLONE PER DAY FOR 3 CONSECUTIVE DAYS) WAS ADMINISTERED TWICE
  2. METHYLPREDNISOLONE SODIUM SUCCINATE [Suspect]
     Active Substance: METHYLPREDNISOLONE SODIUM SUCCINATE
     Dosage: 80 MG
  3. DEXAMETHASONE [Suspect]
     Active Substance: DEXAMETHASONE
     Indication: COVID-19
     Dosage: UNK
  4. PREDNISOLONE [Suspect]
     Active Substance: PREDNISOLONE
     Indication: Acute respiratory distress syndrome
     Dosage: 2 MG
     Route: 042
  5. OXYGEN [Concomitant]
     Active Substance: OXYGEN
     Indication: COVID-19
     Dosage: UNK

REACTIONS (4)
  - Intensive care unit acquired weakness [Recovered/Resolved]
  - Paralysis [Recovered/Resolved]
  - Quadriplegia [Recovered/Resolved]
  - Off label use [Unknown]
